FAERS Safety Report 7985818-0 (Version None)
Quarter: 2011Q4

REPORT INFORMATION
  Report Type: 
  Country: None (occurrence: None)
  Receive Date: 20111214
  Receipt Date: 20111130
  Transmission Date: 20120403
  Serious: Yes (Death, Life-Threatening, Hospitalization)
  Sender: FDA-Public Use
  Company Number: 2009AL006238

PATIENT
  Sex: Female
  Weight: 69.4003 kg

DRUGS (35)
  1. AMARYL [Concomitant]
  2. ERYTHROMYCIN [Concomitant]
  3. FUROSEMIDE [Concomitant]
  4. TIMOLOL MALEATE [Concomitant]
  5. CELEBREX [Concomitant]
  6. LIPITOR [Concomitant]
  7. FOLTX [Concomitant]
  8. CHERATUSSIN AC [Concomitant]
  9. MELOXICAM [Concomitant]
  10. PROCRIT [Concomitant]
  11. CHOLINE [Concomitant]
  12. ANTIBIOTICS [Concomitant]
  13. ACTOS [Concomitant]
  14. CAPTOPRIL [Concomitant]
  15. CHOLINE-MAG TRISALICYLATE [Concomitant]
  16. METHYLPREDNISOLONE [Concomitant]
  17. NIFEREX [Concomitant]
  18. TOPROL-XL [Concomitant]
  19. DIURETICS [Concomitant]
  20. DETROL LA [Concomitant]
  21. FOLBIC [Concomitant]
  22. FOSAMAX [Concomitant]
  23. LEVAQUIN [Concomitant]
  24. SPIRONOLACTONE [Concomitant]
  25. AZITHROMYCIN [Concomitant]
  26. GENTAK [Concomitant]
  27. KLOR-CON [Concomitant]
  28. NITROFURANTOIN [Concomitant]
  29. POLYMIXIN SULFATE [Concomitant]
  30. EPINEPHRINE [Concomitant]
  31. METOPROLOL TARTRATE [Concomitant]
  32. VITAMIN B-12 [Concomitant]
  33. DIGOXIN [Suspect]
     Dosage: 0.125 MG;QD;PO
     Route: 048
     Dates: start: 20050211, end: 20080305
  34. GABAPENTIN [Concomitant]
  35. DOPAMINE HCL [Concomitant]

REACTIONS (32)
  - VITAMIN B12 DEFICIENCY [None]
  - CORONARY ARTERY DISEASE [None]
  - APNOEA [None]
  - AORTIC STENOSIS [None]
  - MULTIPLE INJURIES [None]
  - DIABETES MELLITUS [None]
  - CARDIAC ARREST [None]
  - BRADYCARDIA [None]
  - BRAIN NATRIURETIC PEPTIDE INCREASED [None]
  - CORONARY ARTERY BYPASS [None]
  - CORONARY ARTERIAL STENT INSERTION [None]
  - LEFT ATRIAL DILATATION [None]
  - NORMOCHROMIC NORMOCYTIC ANAEMIA [None]
  - TRICUSPID VALVE INCOMPETENCE [None]
  - PULMONARY HYPERTENSION [None]
  - PAIN [None]
  - ECONOMIC PROBLEM [None]
  - AORTIC VALVE REPLACEMENT [None]
  - HYPERTENSION [None]
  - BUNDLE BRANCH BLOCK RIGHT [None]
  - DIZZINESS [None]
  - CARDIAC FAILURE CONGESTIVE [None]
  - ANXIETY [None]
  - RENAL FAILURE CHRONIC [None]
  - UNRESPONSIVE TO STIMULI [None]
  - MITRAL VALVE INCOMPETENCE [None]
  - LEFT VENTRICULAR HYPERTROPHY [None]
  - CAROTID ARTERY STENOSIS [None]
  - BUNDLE BRANCH BLOCK LEFT [None]
  - WHITE BLOOD CELL COUNT INCREASED [None]
  - UNEVALUABLE EVENT [None]
  - ATRIOVENTRICULAR BLOCK COMPLETE [None]
